FAERS Safety Report 24143111 (Version 1)
Quarter: 2024Q3

REPORT INFORMATION
  Report Type: Spontaneous
  Country: AR (occurrence: MX)
  Receive Date: 20240726
  Receipt Date: 20240726
  Transmission Date: 20241017
  Serious: Yes (Other)
  Sender: BAYER
  Company Number: AR-BAYER-2024A108755

PATIENT
  Age: 47 Year
  Sex: Female
  Weight: 49 kg

DRUGS (2)
  1. STIVARGA [Suspect]
     Active Substance: REGORAFENIB MONOHYDRATE
     Indication: Hepatocellular carcinoma
     Dosage: UNK
     Dates: start: 202301
  2. NEXAVAR [Concomitant]
     Active Substance: SORAFENIB
     Indication: Hepatocellular carcinoma
     Dosage: UNK
     Dates: start: 202212

REACTIONS (1)
  - Hepatocellular carcinoma [None]
